FAERS Safety Report 8294158-4 (Version None)
Quarter: 2012Q2

REPORT INFORMATION
  Report Type: 
  Country: None (occurrence: None)
  Receive Date: 20120418
  Receipt Date: 20120413
  Transmission Date: 20120825
  Serious: Yes (Death)
  Sender: FDA-Public Use
  Company Number: PHEH2012US007362

PATIENT
  Sex: Male
  Weight: 61.5 kg

DRUGS (6)
  1. AMLODIPINE [Concomitant]
     Dosage: 5 MG, QD
     Route: 048
  2. COLACE [Concomitant]
     Dosage: 100 MG, BID
     Route: 048
  3. SANDOSTATIN LAR [Suspect]
     Indication: ACROMEGALY
     Dosage: 30 MG, Q28D
     Route: 030
     Dates: start: 20060401, end: 20120301
  4. SOMAVERT [Concomitant]
     Dosage: 10 MG, DAILY
     Route: 058
  5. PROTONIX [Concomitant]
     Route: 048
  6. FLOMAX [Concomitant]
     Dosage: 0.4 MG, QD
     Route: 048

REACTIONS (1)
  - LUNG NEOPLASM MALIGNANT [None]
